FAERS Safety Report 17025629 (Version 2)
Quarter: 2019Q4

REPORT INFORMATION
  Report Type: Spontaneous
  Country: US (occurrence: US)
  Receive Date: 20191113
  Receipt Date: 20191220
  Transmission Date: 20200122
  Serious: No
  Sender: FDA-Public Use
  Company Number: US-PFIZER INC-2016064096

PATIENT
  Age: 79 Year
  Sex: Female
  Weight: 6.35 kg

DRUGS (3)
  1. IBRANCE [Suspect]
     Active Substance: PALBOCICLIB
     Indication: BREAST CANCER FEMALE
     Dosage: 125 MG, CYCLIC (TAKE ONE (1) CAPSULE BY MOUTH ONCE DAILY WITH FOOD 21 DAYS ON 7 DAYS OFF )
  2. IBRANCE [Suspect]
     Active Substance: PALBOCICLIB
     Dosage: 100 MG, UNK
  3. IBRANCE [Suspect]
     Active Substance: PALBOCICLIB
     Indication: BREAST CANCER FEMALE
     Dosage: 100 MG, CYCLIC (1 PO(PER ORAL) QD(ONCE A DAY) X 21 DAYS THEN HOLD FOR 7 DAYS THEN BEGIN AGAIN)

REACTIONS (2)
  - Nasopharyngitis [Unknown]
  - Cough [Recovered/Resolved]
